FAERS Safety Report 14821320 (Version 2)
Quarter: 2018Q2

REPORT INFORMATION
  Report Type: Spontaneous
  Country: US (occurrence: US)
  Receive Date: 20180427
  Receipt Date: 20180428
  Transmission Date: 20180711
  Serious: No
  Sender: FDA-Public Use
  Company Number: US-009507513-1804USA004660

PATIENT

DRUGS (2)
  1. BRIDION [Suspect]
     Active Substance: SUGAMMADEX
     Dosage: UNK
     Route: 042
  2. BRIDION [Suspect]
     Active Substance: SUGAMMADEX
     Dosage: UNK
     Route: 042

REACTIONS (3)
  - Circumstance or information capable of leading to medication error [Unknown]
  - Product barcode issue [Unknown]
  - No adverse event [Unknown]
